FAERS Safety Report 4983379-1 (Version None)
Quarter: 2006Q2

REPORT INFORMATION
  Report Type: 
  Country: None (occurrence: None)
  Receive Date: 20060426
  Receipt Date: 20051109
  Transmission Date: 20061013
  Serious: Yes (Disabling, Other)
  Sender: FDA-Public Use
  Company Number: US-MERCK-0511USA01567

PATIENT
  Age: 57 Year
  Sex: Female
  Weight: 103 kg

DRUGS (20)
  1. VIOXX [Suspect]
     Indication: FIBROMYALGIA
     Route: 048
     Dates: start: 20000228, end: 20020723
  2. VIOXX [Suspect]
     Indication: CARPAL TUNNEL SYNDROME
     Route: 048
     Dates: start: 20000228, end: 20020723
  3. FLEXERIL [Concomitant]
     Route: 065
     Dates: start: 20000401, end: 20040101
  4. PAXIL [Concomitant]
     Route: 065
  5. MOBIC [Concomitant]
     Route: 065
     Dates: start: 20010501, end: 20010801
  6. ALDACTONE [Concomitant]
     Route: 065
  7. PREVACID [Concomitant]
     Route: 065
  8. EFFEXOR [Concomitant]
     Route: 065
  9. SINGULAIR [Concomitant]
     Route: 065
  10. FLONASE [Concomitant]
     Route: 065
  11. SEREVENT [Concomitant]
     Route: 065
  12. FLOVENT [Concomitant]
     Route: 065
  13. ALBUTEROL [Concomitant]
     Route: 065
  14. BENADRYL [Concomitant]
     Route: 065
  15. DARVOCET [Concomitant]
     Route: 065
  16. NEURONTIN [Concomitant]
     Route: 065
  17. AMBIEN [Concomitant]
     Route: 065
  18. PLENDIL [Concomitant]
     Indication: HYPERTENSION
     Route: 065
     Dates: start: 19970101
  19. SKELAXIN [Concomitant]
     Indication: SPINAL COLUMN STENOSIS
     Route: 065
     Dates: start: 20020401, end: 20020501
  20. SKELAXIN [Concomitant]
     Indication: BACK PAIN
     Route: 065
     Dates: start: 20020401, end: 20020501

REACTIONS (9)
  - ANXIETY [None]
  - CARDIAC MURMUR [None]
  - CEREBROVASCULAR ACCIDENT [None]
  - CONVULSION [None]
  - DIABETES MELLITUS [None]
  - GASTROOESOPHAGEAL REFLUX DISEASE [None]
  - LACUNAR INFARCTION [None]
  - PARAESTHESIA [None]
  - TRANSIENT ISCHAEMIC ATTACK [None]
